FAERS Safety Report 13070072 (Version 1)
Quarter: 2016Q4

REPORT INFORMATION
  Report Type: Spontaneous
  Country: US (occurrence: US)
  Receive Date: 20161228
  Receipt Date: 20161228
  Transmission Date: 20170207
  Serious: Yes (Other)
  Sender: FDA-Public Use
  Company Number: US-ELI_LILLY_AND_COMPANY-US201612009216

PATIENT
  Sex: Female

DRUGS (2)
  1. HUMULIN N [Suspect]
     Active Substance: INSULIN HUMAN
     Dosage: 30 U, BID
     Route: 065
  2. HUMULIN N [Suspect]
     Active Substance: INSULIN HUMAN
     Indication: TYPE 2 DIABETES MELLITUS
     Dosage: 30 U, BID
     Route: 065
     Dates: start: 201604

REACTIONS (4)
  - Pre-eclampsia [Unknown]
  - Maternal exposure during pregnancy [Recovered/Resolved]
  - Blood glucose increased [Unknown]
  - Drug ineffective [Unknown]

NARRATIVE: CASE EVENT DATE: 201604
